FAERS Safety Report 10008508 (Version 5)
Quarter: 2014Q2

REPORT INFORMATION
  Report Type: Spontaneous
  Country: US (occurrence: US)
  Receive Date: 20140313
  Receipt Date: 20140410
  Transmission Date: 20141212
  Serious: Yes (Other)
  Sender: FDA-Public Use
  Company Number: ALCN2014US001631

PATIENT
  Age: 73 Year
  Sex: Female
  Weight: 61.22 kg

DRUGS (1)
  1. SYSTANE ULTRA HIGH PERFORMANCE [Suspect]
     Indication: DRY EYE
     Dosage: 1 GTT, BID
     Route: 047
     Dates: start: 20140307, end: 20140307

REACTIONS (3)
  - Injury corneal [Recovered/Resolved]
  - Product packaging issue [Recovered/Resolved]
  - Expired product administered [Recovered/Resolved]
